APPROVED DRUG PRODUCT: METHYLPHENIDATE HYDROCHLORIDE
Active Ingredient: METHYLPHENIDATE HYDROCHLORIDE
Strength: 5MG/ML
Dosage Form/Route: FOR SUSPENSION, EXTENDED RELEASE;ORAL
Application: A206049 | Product #001 | TE Code: AB
Applicant: ACTAVIS LABORATORIES FL INC
Approved: May 17, 2018 | RLD: No | RS: No | Type: RX